FAERS Safety Report 8998398 (Version 7)
Quarter: 2015Q1

REPORT INFORMATION
  Report Type: Report from Study
  Country: DE (occurrence: DE)
  Receive Date: 20130103
  Receipt Date: 20150223
  Transmission Date: 20150721
  Serious: Yes (Hospitalization)
  Sender: FDA-Public Use
  Company Number: DE-PFIZER INC-2012330089

PATIENT
  Age: 47 Year
  Sex: Male
  Weight: 97 kg

DRUGS (20)
  1. IRINOTECAN HCL [Suspect]
     Active Substance: IRINOTECAN HYDROCHLORIDE
     Dosage: 270 MG, CYCLIC, ONCE EVERY 2 WEEKS
     Route: 042
     Dates: start: 20121108, end: 20130103
  2. BEVACIZUMAB [Suspect]
     Active Substance: BEVACIZUMAB
     Dosage: 930 MG, CYCLIC (EVERY 2 WEEKS)
     Route: 042
     Dates: start: 20121108, end: 20130103
  3. LEVETIRACETAM. [Concomitant]
     Active Substance: LEVETIRACETAM
     Dosage: 1000 MG, UNK
     Dates: start: 20111118, end: 20111222
  4. DEXAMETHASON [Concomitant]
     Active Substance: DEXAMETHASONE
     Dosage: 8 MG /1, UNK
     Dates: start: 20120407, end: 20120409
  5. TALVOSILEN FORTE [Concomitant]
     Dosage: 2000 MG, UNK
     Dates: start: 201203, end: 2012
  6. LEVETIRACETAM. [Concomitant]
     Active Substance: LEVETIRACETAM
     Dosage: 2000 MG, UNK
     Dates: start: 20121220
  7. CLEXANE [Concomitant]
     Active Substance: ENOXAPARIN SODIUM
     Dosage: 0.4 MG, UNK
     Dates: start: 20120309, end: 20120313
  8. IRINOTECAN HCL [Suspect]
     Active Substance: IRINOTECAN HYDROCHLORIDE
     Indication: GLIOBLASTOMA
     Dosage: 270 MG, CYCLIC, ONCE EVERY 2 WEEKS
     Route: 042
     Dates: start: 20120210, end: 20120824
  9. BEVACIZUMAB [Suspect]
     Active Substance: BEVACIZUMAB
     Dosage: EVERY 2 WEEKS
     Route: 042
     Dates: start: 20120405, end: 20120824
  10. L-THYROXIN [Concomitant]
     Active Substance: LEVOTHYROXINE SODIUM
     Dosage: 200 MG, UNK
     Dates: start: 20111118
  11. HYDROCHLOROTHIAZIDE. [Concomitant]
     Active Substance: HYDROCHLOROTHIAZIDE
     Dosage: 12.5 MG, UNK
     Dates: start: 20120127, end: 2012
  12. DEXAMETHASON [Concomitant]
     Active Substance: DEXAMETHASONE
     Dosage: 8 MG /1, UNK
     Dates: start: 20120210, end: 20120214
  13. OMEPRAZOL [Concomitant]
     Active Substance: OMEPRAZOLE
     Dosage: 40 MG, UNK
     Dates: start: 20120127, end: 2012
  14. IRINOTECAN HCL [Suspect]
     Active Substance: IRINOTECAN HYDROCHLORIDE
     Dosage: EVERY 2 WEEKS
     Route: 042
     Dates: start: 20120405, end: 20120824
  15. SEVIKAR [Concomitant]
     Active Substance: AMLODIPINE BESYLATE\OLMESARTAN MEDOXOMIL
     Dosage: 37.5 MG, UNK
     Dates: start: 20120106
  16. DEXAMETHASON [Concomitant]
     Active Substance: DEXAMETHASONE
     Dosage: 8 MG, UNK
     Dates: start: 20120210, end: 20121122
  17. NEXIUM [Concomitant]
     Active Substance: ESOMEPRAZOLE MAGNESIUM
     Dosage: 40 MG, UNK
     Dates: start: 201203, end: 2012
  18. CLINDAMYCIN [Concomitant]
     Active Substance: CLINDAMYCIN\CLINDAMYCIN PHOSPHATE
     Dosage: 1800 MG, UNK
     Dates: start: 20120810, end: 20120824
  19. BEVACIZUMAB [Suspect]
     Active Substance: BEVACIZUMAB
     Indication: GLIOBLASTOMA
     Dosage: 930 MG, CYCLIC, ONCE EVERY 2 WEEKS
     Route: 042
     Dates: start: 20111215, end: 20120309
  20. LEVETIRACETAM. [Concomitant]
     Active Substance: LEVETIRACETAM
     Dosage: 1500 MG, UNK
     Dates: start: 20111222, end: 2012

REACTIONS (1)
  - Wound infection [Not Recovered/Not Resolved]

NARRATIVE: CASE EVENT DATE: 20120307
